FAERS Safety Report 13586514 (Version 1)
Quarter: 2017Q2

REPORT INFORMATION
  Report Type: Spontaneous
  Country: US (occurrence: US)
  Receive Date: 20170526
  Receipt Date: 20170526
  Transmission Date: 20170830
  Serious: Yes (Hospitalization)
  Sender: FDA-Public Use
  Company Number: US-LUNDBECK-DKLU2031776

PATIENT
  Age: 46 Year
  Sex: Female

DRUGS (1)
  1. NORTHERA [Suspect]
     Active Substance: DROXIDOPA
     Indication: HEART RATE INCREASED
     Dosage: TAKING 18 NORTHERA PILLS A DAY THEN CONVERTED TO A SMALLER NUMBER OF PILLS ONCE ESTABLISHED ON THAT
     Route: 065
     Dates: start: 201510

REACTIONS (5)
  - Hyperhidrosis [Unknown]
  - Vomiting [Unknown]
  - Nausea [Unknown]
  - Reversible cerebral vasoconstriction syndrome [Recovered/Resolved with Sequelae]
  - Headache [Not Recovered/Not Resolved]
